FAERS Safety Report 4301739-9 (Version None)
Quarter: 2004Q1

REPORT INFORMATION
  Report Type: 
  Country: None (occurrence: None)
  Receive Date: 20040218
  Receipt Date: 20031217
  Transmission Date: 20041129
  Serious: Yes (Other)
  Sender: FDA-Public Use
  Company Number: 2003-12-1273

PATIENT
  Sex: Female

DRUGS (2)
  1. PEG-INTRON [Suspect]
  2. REBETOL [Suspect]

REACTIONS (3)
  - ANAEMIA [None]
  - RECTAL HAEMORRHAGE [None]
  - SUICIDE ATTEMPT [None]
